FAERS Safety Report 25131183 (Version 1)
Quarter: 2025Q1

REPORT INFORMATION
  Report Type: Spontaneous
  Country: CN (occurrence: CN)
  Receive Date: 20250327
  Receipt Date: 20250327
  Transmission Date: 20250409
  Serious: Yes (Other)
  Sender: EISAI
  Company Number: CN-Eisai-EC-2025-186207

PATIENT
  Age: 54 Year
  Sex: Female
  Weight: 58 kg

DRUGS (1)
  1. ERIBULIN [Suspect]
     Active Substance: ERIBULIN
     Indication: Breast cancer
     Dates: start: 20250318

REACTIONS (1)
  - Nausea [Recovering/Resolving]

NARRATIVE: CASE EVENT DATE: 20250318
